FAERS Safety Report 17191491 (Version 4)
Quarter: 2020Q1

REPORT INFORMATION
  Report Type: Spontaneous
  Country: US (occurrence: US)
  Receive Date: 20191223
  Receipt Date: 20200319
  Transmission Date: 20200409
  Serious: No
  Sender: FDA-Public Use
  Company Number: US-PFIZER INC-2019548925

PATIENT
  Age: 72 Year
  Sex: Male
  Weight: 89.36 kg

DRUGS (4)
  1. CHANTIX [Suspect]
     Active Substance: VARENICLINE TARTRATE
     Dosage: UNK (TAKING HALF THE DOSE)
  2. CHANTIX [Suspect]
     Active Substance: VARENICLINE TARTRATE
     Indication: SMOKING CESSATION THERAPY
     Dosage: UNK (LOW DOSE THE ONE HALF)
  3. CHANTIX [Suspect]
     Active Substance: VARENICLINE TARTRATE
     Dosage: 1 MG, UNK
  4. CHANTIX [Suspect]
     Active Substance: VARENICLINE TARTRATE
     Dosage: 1 DF, 2X/DAY (BLUE TABLET)
     Route: 048

REACTIONS (2)
  - Intentional product misuse [Unknown]
  - Pain [Unknown]

NARRATIVE: CASE EVENT DATE: 2019
